FAERS Safety Report 10637149 (Version 1)
Quarter: 2014Q4

REPORT INFORMATION
  Report Type: Spontaneous
  Country: US (occurrence: None)
  Receive Date: 20141203
  Receipt Date: 20141203
  Transmission Date: 20150529
  Serious: Yes (Hospitalization)
  Sender: FDA-Public Use
  Company Number: None

PATIENT
  Age: 56 Year
  Sex: Male
  Weight: 79.1 kg

DRUGS (2)
  1. RADIATION [Suspect]
     Active Substance: RADIATION THERAPY
     Indication: TONSIL CANCER
     Dosage: 6000 CGY
     Dates: start: 20140527, end: 20140711
  2. N-ACETYLCYSTEINE [Suspect]
     Active Substance: ACETYLCYSTEINE
     Dosage: 5 ML 5 X DAILY PO
     Route: 048
     Dates: start: 20140529, end: 20140614

REACTIONS (2)
  - Lung infection [None]
  - White blood cell count decreased [None]

NARRATIVE: CASE EVENT DATE: 20140712
